FAERS Safety Report 7480990-3 (Version None)
Quarter: 2011Q2

REPORT INFORMATION
  Report Type: 
  Country: None (occurrence: None)
  Receive Date: 20110516
  Receipt Date: 20110502
  Transmission Date: 20111010
  Serious: Yes (Hospitalization, Other)
  Sender: FDA-Public Use
  Company Number: US-CELGENEUS-163-21880-10080124

PATIENT
  Age: 73 Year
  Sex: Male
  Weight: 60.6 kg

DRUGS (13)
  1. PREDNISONE [Suspect]
     Dosage: 5 MILLIGRAM
     Route: 048
     Dates: start: 20100707, end: 20100725
  2. LOVENOX [Concomitant]
     Route: 065
  3. DOCETAXEL [Suspect]
     Dosage: 75 MILLIGRAM/SQ. METER
     Route: 051
     Dates: start: 20100301
  4. AVASTIN [Suspect]
     Dosage: 15 MILLIGRAM/KILOGRAM
     Route: 051
     Dates: start: 20100707, end: 20100707
  5. REVLIMID [Suspect]
     Dosage: 25 MILLIGRAM
     Route: 048
     Dates: start: 20100301
  6. REVLIMID [Suspect]
     Dosage: 25 MILLIGRAM
     Route: 048
     Dates: start: 20100707, end: 20100720
  7. AVASTIN [Suspect]
     Dosage: 15 MILLIGRAM/KILOGRAM
     Route: 051
     Dates: start: 20100301
  8. PREDNISONE [Suspect]
     Dosage: 5 MILLIGRAM
     Route: 048
     Dates: start: 20100301
  9. SENNA-MINT WAF [Concomitant]
     Route: 065
  10. OXYCODONE HCL [Concomitant]
     Route: 065
  11. COLACE [Concomitant]
     Route: 065
  12. DOCETAXEL [Suspect]
     Dosage: 75 MILLIGRAM/SQ. METER
     Route: 051
     Dates: start: 20100707, end: 20100707
  13. CYCLOBENZAPRINE [Concomitant]
     Route: 065

REACTIONS (3)
  - NEUTROPHIL COUNT DECREASED [None]
  - ORAL PAIN [None]
  - OSTEONECROSIS OF JAW [None]
